FAERS Safety Report 20165335 (Version 1)
Quarter: 2021Q4

REPORT INFORMATION
  Report Type: Spontaneous
  Country: IE (occurrence: IE)
  Receive Date: 20211209
  Receipt Date: 20211209
  Transmission Date: 20220303
  Serious: Yes (Other)
  Sender: FDA-Public Use
  Company Number: None

PATIENT

DRUGS (3)
  1. GRAZAX [Suspect]
     Active Substance: PHLEUM PRATENSE POLLEN
     Indication: Immunomodulatory therapy
     Dosage: 75000 SQ-T, QD
     Route: 060
     Dates: start: 20201113, end: 20210901
  2. FLUTICASONE [Concomitant]
     Active Substance: FLUTICASONE
     Indication: Rhinitis allergic
     Dosage: 27.5 MICROGRAM EACH NOSTRIL TWICE DAILY
     Route: 045
     Dates: start: 20201113, end: 20210901
  3. TELFAST                            /01314201/ [Concomitant]
     Indication: Antiallergic therapy
     Dosage: 60 MILLIGRAM, QD
     Dates: start: 20201113, end: 20210901

REACTIONS (6)
  - Urticaria [Recovered/Resolved]
  - Pruritus [Recovered/Resolved]
  - Joint swelling [Recovered/Resolved]
  - Hypersensitivity [Recovered/Resolved]
  - Arthralgia [Recovered/Resolved]
  - Emotional distress [Recovered/Resolved]

NARRATIVE: CASE EVENT DATE: 20210101
